FAERS Safety Report 7511255-9 (Version None)
Quarter: 2011Q2

REPORT INFORMATION
  Report Type: 
  Country: None (occurrence: None)
  Receive Date: 20110531
  Receipt Date: 20101019
  Transmission Date: 20111010
  Serious: Yes (Hospitalization, Other)
  Sender: FDA-Public Use
  Company Number: US-BAYER-201018639NA

PATIENT
  Age: 29 Year
  Sex: Female
  Weight: 77.551 kg

DRUGS (11)
  1. BACTRIM DS [Concomitant]
  2. NASACORT AQ [Concomitant]
     Dosage: UNK UNK, PRN
     Dates: start: 20081101, end: 20090201
  3. COREG [Concomitant]
     Dosage: 6.25 MG, BID
  4. PHENERGAN HCL [Concomitant]
  5. YASMIN [Suspect]
     Indication: POLYCYSTIC OVARIES
     Route: 048
     Dates: start: 20070901, end: 20080815
  6. ASPIRIN [Concomitant]
     Dosage: 81 MG, QD
  7. COREG [Concomitant]
     Dosage: 12.5 MG, BID
  8. NICODERM [Concomitant]
     Dosage: 21 MG, QD
  9. LASIX [Concomitant]
     Dosage: 20 MG, QD
  10. LORTAB [Concomitant]
  11. DROSPIRENONE AND ETHINYL ESTRADIOL [Suspect]
     Indication: POLYCYSTIC OVARIES
     Dosage: UNK
     Route: 048
     Dates: start: 20080801, end: 20090601

REACTIONS (15)
  - ANXIETY [None]
  - CARDIAC FAILURE CONGESTIVE [None]
  - HEADACHE [None]
  - DIZZINESS [None]
  - ORTHOPNOEA [None]
  - ACUTE MYOCARDIAL INFARCTION [None]
  - CHEST DISCOMFORT [None]
  - PALPITATIONS [None]
  - DYSPNOEA [None]
  - HYPERTENSION [None]
  - CONGESTIVE CARDIOMYOPATHY [None]
  - VENTRICULAR ARRHYTHMIA [None]
  - ASTHENIA [None]
  - HEART RATE INCREASED [None]
  - MYOCARDIAL FIBROSIS [None]
